FAERS Safety Report 8949050 (Version 1)
Quarter: 2012Q4

REPORT INFORMATION
  Report Type: 
  Country: DE (occurrence: DE)
  Receive Date: 20121206
  Receipt Date: 20121206
  Transmission Date: 20130627
  Serious: Yes (Hospitalization)
  Sender: FDA-Public Use
  Company Number: DE-ROCHE-1164196

PATIENT
  Sex: Female

DRUGS (10)
  1. AVASTIN [Suspect]
     Indication: GLIOBLASTOMA MULTIFORME
     Route: 042
     Dates: start: 20100720, end: 20100910
  2. TRAMAL [Concomitant]
     Route: 065
     Dates: end: 201009
  3. KEPPRA [Concomitant]
     Indication: EPILEPSY
     Route: 048
     Dates: end: 200912
  4. KEPPRA [Concomitant]
     Route: 042
  5. NEXIUM [Concomitant]
     Route: 065
     Dates: end: 201009
  6. EUTHYROX [Concomitant]
     Indication: HYPOTHYROIDISM
     Route: 065
  7. SIMVAHEXAL [Concomitant]
  8. FRAXIPARIN [Concomitant]
     Route: 058
  9. HCT BETA [Concomitant]
     Route: 065
  10. KALINOR [Concomitant]
     Route: 065

REACTIONS (7)
  - Posterior reversible encephalopathy syndrome [Recovered/Resolved]
  - Epilepsy [Recovered/Resolved]
  - Hypertension [Recovering/Resolving]
  - Urinary tract infection [Recovered/Resolved]
  - Thrombocytopenia [Not Recovered/Not Resolved]
  - Leukocytosis [Not Recovered/Not Resolved]
  - Cerebral hygroma [Unknown]
